FAERS Safety Report 15427653 (Version 3)
Quarter: 2018Q4

REPORT INFORMATION
  Report Type: Not Available
  Country: US (occurrence: US)
  Receive Date: 20180925
  Receipt Date: 20181117
  Transmission Date: 20190204
  Serious: No
  Sender: FDA-Public Use
  Company Number: US-NEUROCRINE BIOSCIENCES INC.-2018NBI02741

PATIENT
  Sex: Female

DRUGS (1)
  1. INGREZZA [Suspect]
     Active Substance: VALBENAZINE
     Indication: PRODUCT USED FOR UNKNOWN INDICATION
     Route: 048
     Dates: start: 20180608, end: 20181012

REACTIONS (4)
  - Swollen tongue [Unknown]
  - Dysphagia [Unknown]
  - Tongue movement disturbance [Unknown]
  - Drug ineffective [None]

NARRATIVE: CASE EVENT DATE: 2018
